FAERS Safety Report 9286993 (Version 2)
Quarter: 2013Q2

REPORT INFORMATION
  Report Type: Spontaneous
  Country: US (occurrence: None)
  Receive Date: 20130508
  Receipt Date: 20130523
  Transmission Date: 20140414
  Serious: Yes (Other)
  Sender: FDA-Public Use
  Company Number: US-1197998

PATIENT
  Age: 53 Year
  Sex: Male

DRUGS (1)
  1. NATACYN [Suspect]
     Indication: EYE INFECTION
     Dosage: (1 GTT Q1H OD OPHTHALMIC)
     Route: 047
     Dates: start: 20130404

REACTIONS (9)
  - Keratitis [None]
  - Ocular hyperaemia [None]
  - Corneal abrasion [None]
  - Eye pain [None]
  - Eye disorder [None]
  - Somnolence [None]
  - Vision blurred [None]
  - Foreign body in eye [None]
  - Retinal disorder [None]
